FAERS Safety Report 7029085-3 (Version None)
Quarter: 2010Q4

REPORT INFORMATION
  Report Type: 
  Country: None (occurrence: None)
  Receive Date: 20101005
  Receipt Date: 20100929
  Transmission Date: 20110411
  Serious: Yes (Life-Threatening)
  Sender: FDA-Public Use
  Company Number: B0676849A

PATIENT
  Sex: Male

DRUGS (7)
  1. AUGMENTIN '125' [Suspect]
     Indication: PRODUCT USED FOR UNKNOWN INDICATION
     Dosage: 2G PER DAY
     Route: 042
     Dates: start: 20100908, end: 20100908
  2. TRACRIUM [Suspect]
     Route: 042
     Dates: start: 20100908, end: 20100908
  3. HYPNOVEL [Concomitant]
     Dosage: 3MG PER DAY
     Route: 065
     Dates: start: 20100908
  4. KETAMINE [Concomitant]
     Dosage: 30MG PER DAY
     Route: 065
     Dates: start: 20100908
  5. SUFENTANIL CITRATE [Concomitant]
     Dosage: 20MCG PER DAY
     Route: 065
     Dates: start: 20100908
  6. DIPRIVAN [Concomitant]
     Route: 065
     Dates: start: 20100908
  7. INTUBATION [Concomitant]

REACTIONS (9)
  - ANAPHYLACTIC SHOCK [None]
  - BRONCHOSPASM [None]
  - CHEST X-RAY ABNORMAL [None]
  - HYPOTENSION [None]
  - LACTIC ACIDOSIS [None]
  - LEUKOCYTOSIS [None]
  - OXYGEN SATURATION DECREASED [None]
  - SHOCK [None]
  - TACHYCARDIA [None]
